FAERS Safety Report 7655103-5 (Version None)
Quarter: 2011Q3

REPORT INFORMATION
  Report Type: 
  Country: None (occurrence: None)
  Receive Date: 20110804
  Receipt Date: 20110725
  Transmission Date: 20111222
  Serious: Yes (Other)
  Sender: FDA-Public Use
  Company Number: US-JNJFOC-20110711475

PATIENT
  Sex: Female
  Weight: 78.47 kg

DRUGS (4)
  1. FOLIC ACID [Concomitant]
     Indication: ARTHRITIS
     Route: 048
  2. REMICADE [Suspect]
     Indication: RHEUMATOID ARTHRITIS
     Route: 042
     Dates: start: 20100101
  3. METHOTREXATE [Concomitant]
     Indication: ARTHRITIS
     Route: 048
     Dates: start: 20080101
  4. LISINOPRIL [Concomitant]
     Indication: HYPERTENSION
     Route: 048
     Dates: start: 20090101

REACTIONS (2)
  - JOINT EFFUSION [None]
  - LIGAMENT SPRAIN [None]
